FAERS Safety Report 13456017 (Version 1)
Quarter: 2017Q2

REPORT INFORMATION
  Report Type: Spontaneous
  Country: CA (occurrence: CA)
  Receive Date: 20170418
  Receipt Date: 20170418
  Transmission Date: 20170830
  Serious: Yes (Hospitalization)
  Sender: FDA-Public Use
  Company Number: CA-PFIZER INC-2017052147

PATIENT
  Age: 70 Year
  Sex: Female

DRUGS (1)
  1. PREMARIN [Suspect]
     Active Substance: ESTROGENS, CONJUGATED
     Indication: VULVOVAGINAL DRYNESS
     Dosage: 1.5 UNK, UNK
     Dates: start: 201606, end: 201609

REACTIONS (4)
  - Pollakiuria [Unknown]
  - Incorrect dose administered [Unknown]
  - Product label confusion [Unknown]
  - Application site pain [Unknown]

NARRATIVE: CASE EVENT DATE: 201606
